FAERS Safety Report 6962147-5 (Version None)
Quarter: 2010Q3

REPORT INFORMATION
  Report Type: 
  Country: None (occurrence: None)
  Receive Date: 20100901
  Receipt Date: 20100901
  Transmission Date: 20110219
  Serious: Yes (Other)
  Sender: FDA-Public Use
  Company Number: None

PATIENT
  Age: 55 Year
  Sex: Female
  Weight: 43.5453 kg

DRUGS (1)
  1. REMBRANDT 2 HOUR WHITENING KIT [Suspect]
     Indication: DENTAL COSMETIC PROCEDURE
     Dosage: 1X ORAL, TOPICAL FOR 2 HOURS
     Route: 048
     Dates: start: 20100628

REACTIONS (5)
  - APHAGIA [None]
  - ARTIFICIAL CROWN PROCEDURE [None]
  - ENDODONTIC PROCEDURE [None]
  - PAIN [None]
  - SLEEP DISORDER [None]
